FAERS Safety Report 14995169 (Version 2)
Quarter: 2018Q2

REPORT INFORMATION
  Report Type: Spontaneous
  Country: CN (occurrence: CN)
  Receive Date: 20180611
  Receipt Date: 20180614
  Transmission Date: 20180711
  Serious: Yes (Other)
  Sender: FDA-Public Use
  Company Number: CN-GLAXOSMITHKLINE-CN2018GSK099453

PATIENT
  Sex: Male

DRUGS (4)
  1. ANTISTERONE [Concomitant]
     Active Substance: UNSPECIFIED INGREDIENT
     Indication: POLYURIA
     Dosage: 40 MG, 1D
     Route: 048
     Dates: start: 20171223, end: 20180227
  2. HEPTODIN [Suspect]
     Active Substance: LAMIVUDINE
     Indication: CHRONIC HEPATITIS B
     Dosage: UNK
     Route: 048
     Dates: start: 20180102
  3. FUROSEMIDE. [Concomitant]
     Active Substance: FUROSEMIDE
     Indication: POLYURIA
     Dosage: 20 MG, 1D
     Route: 048
     Dates: start: 20171223, end: 20180227
  4. VIREAD [Suspect]
     Active Substance: TENOFOVIR DISOPROXIL FUMARATE
     Indication: CHRONIC HEPATITIS B
     Dosage: 300 MG, QD
     Route: 048
     Dates: start: 20171213, end: 20180101

REACTIONS (3)
  - Acute kidney injury [Recovering/Resolving]
  - Blood creatinine increased [Recovering/Resolving]
  - Urine output decreased [Recovered/Resolved]

NARRATIVE: CASE EVENT DATE: 20180102
